FAERS Safety Report 11408721 (Version 2)
Quarter: 2015Q4

REPORT INFORMATION
  Report Type: Spontaneous
  Country: CZ (occurrence: CZ)
  Receive Date: 20150823
  Receipt Date: 20151103
  Transmission Date: 20160304
  Serious: Yes (Other)
  Sender: FDA-Public Use
  Company Number: CZ-TEVA-588025ISR

PATIENT
  Age: 87 Year
  Sex: Female
  Weight: 82 kg

DRUGS (1)
  1. METFORMIN [Suspect]
     Active Substance: METFORMIN HYDROCHLORIDE
     Dosage: 2 GRAM DAILY;
     Route: 048

REACTIONS (1)
  - Renal failure [Not Recovered/Not Resolved]
